FAERS Safety Report 23778254 (Version 1)
Quarter: 2024Q2

REPORT INFORMATION
  Report Type: Spontaneous
  Country: US (occurrence: None)
  Receive Date: 20240423
  Receipt Date: 20240423
  Transmission Date: 20240716
  Serious: Yes (Other)
  Sender: FDA-Public Use
  Company Number: None

PATIENT
  Sex: Female

DRUGS (1)
  1. KESIMPTA [Suspect]
     Active Substance: OFATUMUMAB
     Indication: Multiple sclerosis
     Dosage: OTHER FREQUENCY : MNTHLY START WK 4;?
     Route: 058
     Dates: start: 20231213

REACTIONS (6)
  - Spinal operation [None]
  - Surgical procedure repeated [None]
  - Post procedural complication [None]
  - Muscle spasticity [None]
  - Inappropriate schedule of product administration [None]
  - Injection site haemorrhage [None]
